FAERS Safety Report 5118131-X (Version None)
Quarter: 2006Q4

REPORT INFORMATION
  Report Type: 
  Country: None (occurrence: None)
  Receive Date: 20061002
  Receipt Date: 20060920
  Transmission Date: 20070319
  Serious: Yes (Other)
  Sender: FDA-Public Use
  Company Number: PHEH2006US11976

PATIENT
  Age: 80 Year
  Sex: Female

DRUGS (1)
  1. ZOMETA [Suspect]
     Indication: COMPRESSION FRACTURE
     Dosage: 3 MG, 3 DOSES, EVERY MONTH

REACTIONS (11)
  - BONE DISORDER [None]
  - IMPAIRED HEALING [None]
  - ORAL SOFT TISSUE DISORDER [None]
  - ORAL SURGERY [None]
  - OSTEONECROSIS [None]
  - PAIN [None]
  - PRIMARY SEQUESTRUM [None]
  - SLEEP DISORDER [None]
  - SWELLING [None]
  - TOOTH EXTRACTION [None]
  - WOUND DEHISCENCE [None]
